FAERS Safety Report 7820496-2 (Version None)
Quarter: 2011Q4

REPORT INFORMATION
  Report Type: 
  Country: None (occurrence: None)
  Receive Date: 20111012
  Receipt Date: 20110927
  Transmission Date: 20120403
  Serious: Yes (Other)
  Sender: FDA-Public Use
  Company Number: 2011SP045873

PATIENT
  Sex: Female

DRUGS (7)
  1. RIBAVIRIN [Suspect]
     Indication: HEPATITIS C
     Dates: start: 20110903
  2. RIBAVIRIN [Suspect]
     Indication: HEPATITIS C
     Dates: start: 20100101
  3. RIBAVIRIN [Suspect]
     Indication: HEPATITIS C
     Dates: start: 20070413
  4. PEGASYS [Suspect]
     Indication: HEPATITIS C
     Dates: start: 20110903
  5. PEGASYS [Suspect]
     Indication: HEPATITIS C
     Dates: start: 20100102
  6. PEG-INTRON [Suspect]
     Indication: HEPATITIS C
     Dates: start: 20110930
  7. PEG-INTRON [Suspect]
     Indication: HEPATITIS C
     Dates: start: 20070413

REACTIONS (6)
  - WEIGHT DECREASED [None]
  - CONVULSION [None]
  - BLOOD COUNT ABNORMAL [None]
  - ALOPECIA [None]
  - CONDITION AGGRAVATED [None]
  - ANAEMIA [None]
